FAERS Safety Report 5722316-9 (Version None)
Quarter: 2008Q2

REPORT INFORMATION
  Report Type: 
  Country: None (occurrence: None)
  Receive Date: 20080429
  Receipt Date: 20070830
  Transmission Date: 20081010
  Serious: No
  Sender: FDA-Public Use
  Company Number: US-ASTRAZENECA-2007UW20661

PATIENT
  Age: 78 Year
  Sex: Female

DRUGS (5)
  1. NEXIUM [Suspect]
     Indication: GASTROOESOPHAGEAL REFLUX DISEASE
     Route: 048
  2. CRESTOR [Concomitant]
  3. COZAAR [Concomitant]
  4. NORVASC [Concomitant]
  5. DIABETES PILL [Concomitant]

REACTIONS (2)
  - PRURITUS [None]
  - SKIN IRRITATION [None]
